FAERS Safety Report 18090534 (Version 2)
Quarter: 2020Q3

REPORT INFORMATION
  Report Type: Spontaneous
  Country: US (occurrence: US)
  Receive Date: 20200730
  Receipt Date: 20200804
  Transmission Date: 20201103
  Serious: Yes (Hospitalization, Other)
  Sender: FDA-Public Use
  Company Number: US-ADVANZ PHARMA-202007007287

PATIENT

DRUGS (6)
  1. DEXAMETHASONE. [Suspect]
     Active Substance: DEXAMETHASONE
     Dosage: INTRAOPERATIVE
     Route: 057
  2. PREDNISOLONE. [Suspect]
     Active Substance: PREDNISOLONE
     Indication: CORNEAL DEGENERATION
     Dosage: PROLONGED STEROID USE
     Route: 047
  3. PREDNISOLONE. [Suspect]
     Active Substance: PREDNISOLONE
     Indication: APHAKIA
  4. TRIAMCINOLONE [Suspect]
     Active Substance: TRIAMCINOLONE
     Dosage: INTRAOPERATIVE
  5. SODIUM CHLORIDE 5 % [Concomitant]
     Indication: CORNEAL DEGENERATION
     Dosage: SIX TIMES A DAY
  6. SODIUM CHLORIDE 5 % [Concomitant]
     Indication: APHAKIA

REACTIONS (2)
  - Cytomegalovirus chorioretinitis [Recovered/Resolved]
  - Rhegmatogenous retinal detachment [Recovering/Resolving]
